FAERS Safety Report 6333159-X (Version None)
Quarter: 2009Q3

REPORT INFORMATION
  Report Type: 
  Country: None (occurrence: None)
  Receive Date: 20090828
  Receipt Date: 20090820
  Transmission Date: 20100115
  Serious: Yes (Hospitalization, Other)
  Sender: FDA-Public Use
  Company Number: US-MERCK-0805USA00462

PATIENT
  Age: 54 Year
  Sex: Female
  Weight: 60 kg

DRUGS (3)
  1. FOSAMAX [Suspect]
     Indication: PROPHYLAXIS
     Route: 048
     Dates: start: 20020115, end: 20050719
  2. FOSAMAX [Suspect]
     Indication: OSTEOPOROSIS
     Route: 048
     Dates: start: 20020115, end: 20050719
  3. PREMARIN [Concomitant]
     Indication: MENOPAUSE
     Route: 065

REACTIONS (34)
  - ANXIETY [None]
  - BRUXISM [None]
  - CHEST PAIN [None]
  - COLON ADENOMA [None]
  - DENTAL CARIES [None]
  - DEPRESSION [None]
  - DIABETES MELLITUS [None]
  - DYSPNOEA [None]
  - EXOSTOSIS [None]
  - FATIGUE [None]
  - GASTRITIS [None]
  - GASTROOESOPHAGEAL REFLUX DISEASE [None]
  - GINGIVAL BLEEDING [None]
  - GINGIVAL PAIN [None]
  - HIATUS HERNIA [None]
  - HYPOKALAEMIA [None]
  - MOUTH ULCERATION [None]
  - MUSCLE TIGHTNESS [None]
  - NERVOUSNESS [None]
  - NON-CARDIAC CHEST PAIN [None]
  - OESOPHAGEAL ULCER [None]
  - OESOPHAGITIS [None]
  - ORAL HERPES [None]
  - ORAL INFECTION [None]
  - OSTEOMYELITIS [None]
  - OSTEONECROSIS [None]
  - PEPTIC ULCER [None]
  - PRURITUS [None]
  - RESORPTION BONE INCREASED [None]
  - RETINAL DETACHMENT [None]
  - SINUS DISORDER [None]
  - STOMATITIS [None]
  - TEMPOROMANDIBULAR JOINT SYNDROME [None]
  - URTICARIA [None]
